FAERS Safety Report 7409150-9 (Version None)
Quarter: 2011Q2

REPORT INFORMATION
  Report Type: 
  Country: None (occurrence: None)
  Receive Date: 20110412
  Receipt Date: 20110405
  Transmission Date: 20111010
  Serious: Yes (Hospitalization)
  Sender: FDA-Public Use
  Company Number: US-ROCHE-764649

PATIENT
  Sex: Male
  Weight: 69.9 kg

DRUGS (4)
  1. XELODA [Suspect]
     Indication: METASTATIC GASTRIC CANCER
     Route: 048
     Dates: start: 20100924, end: 20110121
  2. XELODA [Suspect]
     Dosage: FREQUENCY: 7/14 DAYS
     Route: 048
     Dates: start: 20110126, end: 20110303
  3. EPIRUBICIN [Concomitant]
     Indication: METASTATIC GASTRIC CANCER
     Route: 042
     Dates: start: 20100924, end: 20110121
  4. OXALIPLATIN [Concomitant]
     Indication: METASTATIC GASTRIC CANCER
     Route: 042
     Dates: start: 20100924, end: 20110121

REACTIONS (1)
  - DEMENTIA [None]
